FAERS Safety Report 5697772-5 (Version None)
Quarter: 2008Q2

REPORT INFORMATION
  Report Type: 
  Country: None (occurrence: None)
  Receive Date: 20080408
  Receipt Date: 20080403
  Transmission Date: 20081010
  Serious: Yes (Other)
  Sender: FDA-Public Use
  Company Number: US-ASTRAZENECA-2006UW11093

PATIENT
  Age: 55 Year
  Sex: Male
  Weight: 97.7 kg

DRUGS (10)
  1. SEROQUEL [Suspect]
     Indication: ANXIETY
     Route: 048
     Dates: start: 20010101, end: 20060101
  2. SEROQUEL [Suspect]
     Indication: DEPRESSION
     Route: 048
     Dates: start: 20010101, end: 20060101
  3. SEROQUEL [Suspect]
     Indication: BIPOLAR DISORDER
     Route: 048
     Dates: start: 20010101, end: 20060101
  4. SEROQUEL [Suspect]
     Dosage: 50 MG TO 100 MG
     Route: 048
     Dates: start: 20020101, end: 20060101
  5. SEROQUEL [Suspect]
     Dosage: 50 MG TO 100 MG
     Route: 048
     Dates: start: 20020101, end: 20060101
  6. SEROQUEL [Suspect]
     Dosage: 50 MG TO 100 MG
     Route: 048
     Dates: start: 20020101, end: 20060101
  7. THORAZINE [Concomitant]
     Dates: start: 19740101
  8. LORAZEPAM [Concomitant]
  9. BUPROPION HCL [Concomitant]
  10. CITALOPRAM HYDROBROMIDE [Concomitant]
     Dates: start: 20020101

REACTIONS (7)
  - BLOOD CHOLESTEROL INCREASED [None]
  - CARDIAC DISORDER [None]
  - CHOLECYSTECTOMY [None]
  - DIABETES MELLITUS [None]
  - HEPATITIS C [None]
  - OBESITY [None]
  - PANCREATITIS [None]
